FAERS Safety Report 13788108 (Version 6)
Quarter: 2017Q3

REPORT INFORMATION
  Report Type: Spontaneous
  Country: KR (occurrence: KR)
  Receive Date: 20170725
  Receipt Date: 20170913
  Transmission Date: 20171127
  Serious: Yes (Other)
  Sender: FDA-Public Use
  Company Number: KR-009507513-1707KOR009726

PATIENT
  Age: 58 Year
  Sex: Female
  Weight: 57.8 kg

DRUGS (19)
  1. DEXAMETHASONE SODIUM PHOSPHATE. [Concomitant]
     Active Substance: DEXAMETHASONE SODIUM PHOSPHATE
     Dosage: 12 MG, ONCE; STRENGTH: 5 MG/ML
     Route: 042
     Dates: start: 20170208, end: 20170208
  2. EMEND (FOSAPREPITANT DIMEGLUMINE) [Suspect]
     Active Substance: FOSAPREPITANT DIMEGLUMINE
     Dosage: 150 MG, ONCE
     Route: 042
     Dates: start: 20170208, end: 20170208
  3. FLUOROURACIL. [Concomitant]
     Active Substance: FLUOROURACIL
     Indication: LIP AND/OR ORAL CAVITY CANCER
     Dosage: 1177 MG, QD; STRENGTH: 500 MG/10 ML
     Route: 042
     Dates: start: 20160906, end: 20160910
  4. CISPLAN [Concomitant]
     Active Substance: CISPLATIN
     Dosage: 24 MG, QD; STRENGTH: 50 MG/100 ML
     Route: 042
     Dates: start: 20170208, end: 20170210
  5. NASERON [Concomitant]
     Indication: PREMEDICATION
     Dosage: 0.3 MG, ONCE
     Route: 042
     Dates: start: 20160906, end: 20160906
  6. HEXAMEDINE [Concomitant]
     Indication: PROPHYLAXIS
     Dosage: 1 BOTTLE (BTL), QD; ROUTE: GARGLE
     Route: 050
     Dates: start: 20160906, end: 201609
  7. ULTRACET [Concomitant]
     Active Substance: ACETAMINOPHEN\TRAMADOL HYDROCHLORIDE
     Indication: PROPHYLAXIS
     Dosage: 1 TABLET, QD
     Route: 048
     Dates: start: 20160907, end: 20160919
  8. NEURONTIN [Concomitant]
     Active Substance: GABAPENTIN
     Indication: PROPHYLAXIS
     Dosage: 100 MG (1 CAPSULE), QD
     Route: 048
     Dates: start: 20160911, end: 20160919
  9. CISPLAN [Concomitant]
     Active Substance: CISPLATIN
     Indication: LIP AND/OR ORAL CAVITY CANCER
     Dosage: 94 MG, ONCE; STRENGTH: 50 MG/100 ML
     Route: 042
     Dates: start: 20160906, end: 20160906
  10. CRESTOR [Concomitant]
     Active Substance: ROSUVASTATIN CALCIUM
     Indication: HYPERLIPIDAEMIA
     Dosage: 1 TABLET, QD
     Route: 048
  11. MACPERAN [Concomitant]
     Active Substance: METOCLOPRAMIDE HYDROCHLORIDE
     Indication: PROPHYLAXIS OF NAUSEA AND VOMITING
     Dosage: 5 MG, TID
     Route: 048
     Dates: start: 20160912, end: 20160919
  12. TYLENOL [Concomitant]
     Active Substance: ACETAMINOPHEN
     Indication: PAIN PROPHYLAXIS
     Dosage: 2 TABLETS, TID
     Route: 048
     Dates: start: 20160912, end: 20160917
  13. TYLENOL [Concomitant]
     Active Substance: ACETAMINOPHEN
     Indication: PROPHYLAXIS
  14. EMEND (FOSAPREPITANT DIMEGLUMINE) [Suspect]
     Active Substance: FOSAPREPITANT DIMEGLUMINE
     Indication: PROPHYLAXIS OF NAUSEA AND VOMITING
     Dosage: 150 MG, ONCE
     Route: 042
     Dates: start: 20160906, end: 20160906
  15. DEXAMETHASONE SODIUM PHOSPHATE. [Concomitant]
     Active Substance: DEXAMETHASONE SODIUM PHOSPHATE
     Indication: PREMEDICATION
     Dosage: 12 MG, ONCE; STRENGTH: 5 MG/ML
     Route: 042
     Dates: start: 20160906, end: 20160906
  16. DEXAMETHASONE SODIUM PHOSPHATE. [Concomitant]
     Active Substance: DEXAMETHASONE SODIUM PHOSPHATE
     Dosage: 8 MG, ONCE; STRENGTH: 5 MG/ML
     Route: 042
     Dates: start: 20160907, end: 20160907
  17. NASERON [Concomitant]
     Dosage: 0.3 MG, ONCE
     Route: 042
     Dates: start: 20170208, end: 20170208
  18. MACPERAN [Concomitant]
     Active Substance: METOCLOPRAMIDE HYDROCHLORIDE
     Indication: PROPHYLAXIS
     Dosage: 10 MG, ONCE
     Route: 042
     Dates: start: 20160910, end: 20160910
  19. MAGO [Concomitant]
     Indication: CONSTIPATION PROPHYLAXIS
     Dosage: 1 CAPSULE, TID
     Route: 048
     Dates: start: 20160907, end: 20170208

REACTIONS (4)
  - Febrile neutropenia [Recovered/Resolved]
  - Nail disorder [Recovered/Resolved]
  - Dermatitis contact [Recovered/Resolved]
  - Groin abscess [Recovered/Resolved]

NARRATIVE: CASE EVENT DATE: 20161026
